FAERS Safety Report 9256672 (Version 2)
Quarter: 2013Q3

REPORT INFORMATION
  Report Type: Spontaneous
  Country: US (occurrence: US)
  Receive Date: 20130426
  Receipt Date: 20130705
  Transmission Date: 20140515
  Serious: Yes (Hospitalization, Disabling)
  Sender: FDA-Public Use
  Company Number: US-ASTRAZENECA-2013SE27723

PATIENT
  Age: 584 Month
  Sex: Female

DRUGS (17)
  1. NEXIUM [Suspect]
     Indication: GASTROOESOPHAGEAL REFLUX DISEASE
     Route: 048
  2. NEXIUM [Suspect]
     Indication: GASTROOESOPHAGEAL REFLUX DISEASE
     Route: 048
     Dates: end: 2012
  3. TUMS [Concomitant]
     Indication: DYSPEPSIA
  4. LISINOPRIL [Concomitant]
     Route: 048
     Dates: start: 20080408
  5. KOMBIGLYZE XR [Concomitant]
     Route: 048
  6. LORATADINE [Concomitant]
  7. HYDROCO/ACETAMIN [Concomitant]
     Dosage: 7.5/500 MG
     Dates: start: 20090812
  8. PHENTERMINE [Concomitant]
     Dates: start: 20051107
  9. PREDNISONE [Concomitant]
     Dates: start: 20070223
  10. METOPROLOL TARTRATE [Concomitant]
     Dates: start: 20080226
  11. PLAVIX [Concomitant]
     Route: 048
     Dates: start: 20080226
  12. LIPITOR [Concomitant]
     Route: 048
     Dates: start: 20080324
  13. SINGULAIR [Concomitant]
     Route: 048
     Dates: start: 20080520
  14. PANTOPRAZOLE [Concomitant]
     Route: 048
     Dates: start: 20080521
  15. METHYLPRED [Concomitant]
     Dates: start: 20080816
  16. PROAIR HFA [Concomitant]
     Dosage: 90MCO
     Dates: start: 20120110
  17. AMLODIPINE BESYLATE [Concomitant]
     Route: 048

REACTIONS (6)
  - Surgery [Unknown]
  - Ankle fracture [Unknown]
  - Intervertebral disc protrusion [Unknown]
  - Osteoporosis [Unknown]
  - Bone density decreased [Unknown]
  - Multiple fractures [Unknown]
